FAERS Safety Report 10231101 (Version 1)
Quarter: 2014Q2

REPORT INFORMATION
  Report Type: Report from Study
  Country: CA (occurrence: CA)
  Receive Date: 20140611
  Receipt Date: 20140611
  Transmission Date: 20141212
  Serious: Yes (Other)
  Sender: FDA-Public Use
  Company Number: CA-BRISTOL-MYERS SQUIBB COMPANY-20949004

PATIENT
  Age: 63 Year
  Sex: Female

DRUGS (11)
  1. ORENCIA [Suspect]
     Indication: RHEUMATOID ARTHRITIS
     Route: 042
     Dates: start: 20140207
  2. LYRICA [Concomitant]
  3. PANTOPRAZOLE [Concomitant]
  4. PREDNISONE [Concomitant]
  5. VITAMIN B12 [Concomitant]
  6. ELAVIL [Concomitant]
  7. FOLIC ACID [Concomitant]
  8. ADVAIR [Concomitant]
  9. VENTOLIN [Concomitant]
  10. SPIRIVA [Concomitant]
  11. BISOPROLOL [Concomitant]

REACTIONS (1)
  - Trigger finger [Unknown]
